FAERS Safety Report 21391386 (Version 3)
Quarter: 2022Q4

REPORT INFORMATION
  Report Type: Spontaneous
  Country: US (occurrence: US)
  Receive Date: 20220929
  Receipt Date: 20221102
  Transmission Date: 20230113
  Serious: Yes (Death)
  Sender: FDA-Public Use
  Company Number: US-IRONSHORE PHARMACEUTICALS INC. (IPA)-JOR-2022-000139

PATIENT
  Age: 13 Year
  Sex: Male
  Weight: 58.957 kg

DRUGS (5)
  1. JORNAY PM EXTENDED-RELEASE [Suspect]
     Active Substance: METHYLPHENIDATE HYDROCHLORIDE
     Indication: Attention deficit hyperactivity disorder
     Dosage: 40 MG, QD
     Route: 048
     Dates: start: 20220601, end: 20220603
  2. ARIPIPRAZOLE [Concomitant]
     Active Substance: ARIPIPRAZOLE
     Indication: Autism spectrum disorder
     Dosage: 10 MG/5 ML, QD
     Route: 048
     Dates: start: 20201110, end: 20220603
  3. ARIPIPRAZOLE [Concomitant]
     Active Substance: ARIPIPRAZOLE
     Indication: Irritability
  4. METHYLPHENIDATE HYDROCHLORIDE [Concomitant]
     Active Substance: METHYLPHENIDATE HYDROCHLORIDE
     Indication: Product used for unknown indication
     Dosage: 2.5 MILLIGRAM PER MILLILITRE, QD
     Route: 065
     Dates: start: 20180102
  5. METHYLPHENIDATE HYDROCHLORIDE [Concomitant]
     Active Substance: METHYLPHENIDATE HYDROCHLORIDE
     Dosage: 5 MILLIGRAM PER 5 MILLILITRE, QD
     Route: 065
     Dates: end: 20220601

REACTIONS (3)
  - Toxicity to various agents [Fatal]
  - Autopsy [Unknown]
  - Adverse event [Unknown]

NARRATIVE: CASE EVENT DATE: 20220604
